FAERS Safety Report 6213127-9 (Version None)
Quarter: 2009Q2

REPORT INFORMATION
  Report Type: 
  Country: None (occurrence: None)
  Receive Date: 20090528
  Receipt Date: 20080527
  Transmission Date: 20091009
  Serious: Yes (Hospitalization)
  Sender: FDA-Public Use
  Company Number: 2008-BP-08132RO

PATIENT
  Age: 63 Year
  Sex: Female
  Weight: 58 kg

DRUGS (8)
  1. PREDNISONE TAB [Suspect]
     Indication: CHRONIC OBSTRUCTIVE PULMONARY DISEASE
     Dosage: SEE TEXT (HR,20MG THREE TIMES A DAY), PO
     Route: 048
     Dates: start: 20030717, end: 20030721
  2. PLACEBO (PLACEBO) [Suspect]
     Indication: OSTEOPOROSIS
     Dosage: 0 MG (0 MG, 1 IN 1 D), PO
     Route: 048
     Dates: start: 20020621
  3. ATENOLOL [Concomitant]
  4. ASA (ACETYLSALICYLIC ACID) (ACETYLSALICYLIC ACID) [Concomitant]
  5. ALBUTEROL (SALBUTAMOL) (SALBUTAMOL) [Concomitant]
  6. FLUTICASONE (FLUTICASONE) (FLUTICASONE) [Concomitant]
  7. CALCIUM WITH VITAMIN D (OS-CAL /00188401/) (ERGOCALCIFEROL, CALCIUM) [Concomitant]
  8. TIZANIDINE (TIZANIDINE) (TIZANIDINE) [Concomitant]

REACTIONS (1)
  - HYPERTENSION [None]
